FAERS Safety Report 6027531-5 (Version None)
Quarter: 2009Q1

REPORT INFORMATION
  Report Type: 
  Country: None (occurrence: None)
  Receive Date: 20090105
  Receipt Date: 20081229
  Transmission Date: 20090719
  Serious: Yes (Hospitalization)
  Sender: FDA-Public Use
  Company Number: US-AMGEN-US323087

PATIENT
  Sex: Female
  Weight: 68.6 kg

DRUGS (16)
  1. NEUPOGEN [Suspect]
     Indication: CHEMOTHERAPY
     Route: 058
     Dates: start: 20081118, end: 20081119
  2. ADVAIR DISKUS 250/50 [Concomitant]
     Route: 065
  3. ALBUTEROL [Concomitant]
     Route: 065
  4. AMITRIPTYLINE HCL [Concomitant]
     Route: 065
  5. VITAMIN D3 [Concomitant]
     Route: 065
  6. VALTREX [Concomitant]
     Route: 065
  7. ZOFRAN [Concomitant]
     Route: 065
  8. CITALOPRAM [Concomitant]
     Route: 065
  9. FLUCONAZOLE [Concomitant]
     Route: 065
  10. VICODIN [Concomitant]
     Route: 065
  11. LORAZEPAM [Concomitant]
     Route: 065
  12. MEGACE [Concomitant]
     Route: 065
  13. OXYCONTIN [Concomitant]
     Route: 065
  14. COMPAZINE [Concomitant]
     Route: 065
  15. ETOPOSIDE [Concomitant]
     Route: 065
  16. CARBOPLATIN [Concomitant]
     Route: 065

REACTIONS (1)
  - PULMONARY EMBOLISM [None]
